FAERS Safety Report 7605980-9 (Version None)
Quarter: 2011Q3

REPORT INFORMATION
  Report Type: 
  Country: None (occurrence: None)
  Receive Date: 20110713
  Receipt Date: 20110708
  Transmission Date: 20111222
  Serious: Yes (Life-Threatening, Hospitalization, Other)
  Sender: FDA-Public Use
  Company Number: PHHO2008US04070

PATIENT
  Sex: Male
  Weight: 103 kg

DRUGS (2)
  1. AMOXICILLIN [Suspect]
     Dosage: 500 MG, TID
     Route: 048
     Dates: start: 20080322
  2. ZORTRESS [Suspect]
     Indication: HEART TRANSPLANT
     Dosage: 0.25 MG, BID
     Route: 048
     Dates: start: 20071203, end: 20080328

REACTIONS (20)
  - DIARRHOEA [None]
  - LOCAL SWELLING [None]
  - POST PROCEDURAL SEPSIS [None]
  - BRACHIOCEPHALIC VEIN STENOSIS [None]
  - FAILURE TO THRIVE [None]
  - DECREASED APPETITE [None]
  - PULMONARY FIBROSIS [None]
  - ASTHENIA [None]
  - DEEP VEIN THROMBOSIS [None]
  - PYREXIA [None]
  - ESCHERICHIA BACTERAEMIA [None]
  - OXYGEN SATURATION DECREASED [None]
  - LUNG INFILTRATION [None]
  - RESPIRATORY DISTRESS [None]
  - HYPOXIA [None]
  - GENERAL PHYSICAL HEALTH DETERIORATION [None]
  - SUPERIOR VENA CAVAL STENOSIS [None]
  - DEHYDRATION [None]
  - MYCOBACTERIUM AVIUM COMPLEX INFECTION [None]
  - HYPOAESTHESIA [None]
